FAERS Safety Report 23093148 (Version 1)
Quarter: 2023Q4

REPORT INFORMATION
  Report Type: Spontaneous
  Country: US (occurrence: US)
  Receive Date: 20231022
  Receipt Date: 20231022
  Transmission Date: 20240110
  Serious: Yes (Death)
  Sender: FDA-Public Use
  Company Number: US-BEH-2023164537

PATIENT
  Age: 81 Year
  Sex: Female

DRUGS (1)
  1. PRIVIGEN [Suspect]
     Active Substance: HUMAN IMMUNOGLOBULIN G
     Indication: Hypogammaglobulinaemia
     Dosage: 15 GRAM, QMT
     Route: 042
     Dates: start: 202208

REACTIONS (1)
  - Fall [Fatal]

NARRATIVE: CASE EVENT DATE: 20231017
